FAERS Safety Report 20490582 (Version 1)
Quarter: 2022Q1

REPORT INFORMATION
  Report Type: Report from Study
  Country: US (occurrence: US)
  Receive Date: 20220218
  Receipt Date: 20220218
  Transmission Date: 20220423
  Serious: Yes (Other)
  Sender: FDA-Public Use
  Company Number: US-UCBSA-2022007041

PATIENT
  Age: 80 Year
  Sex: Male

DRUGS (1)
  1. CERTOLIZUMAB PEGOL [Suspect]
     Active Substance: CERTOLIZUMAB PEGOL
     Indication: Rheumatoid arthritis
     Dosage: 400 MILLIGRAM, EV 2 WEEKS(QOW)
     Dates: start: 20220131, end: 20220131

REACTIONS (3)
  - Pollakiuria [Recovering/Resolving]
  - Rheumatoid arthritis [Recovering/Resolving]
  - Movement disorder [Recovering/Resolving]

NARRATIVE: CASE EVENT DATE: 20220201
